FAERS Safety Report 19709738 (Version 2)
Quarter: 2021Q3

REPORT INFORMATION
  Report Type: Spontaneous
  Country: US (occurrence: US)
  Receive Date: 20210816
  Receipt Date: 20210901
  Transmission Date: 20211014
  Serious: Yes (Hospitalization)
  Sender: FDA-Public Use
  Company Number: US-PFIZER INC-202100999325

PATIENT
  Age: 63 Year
  Sex: Male

DRUGS (7)
  1. FUROSEMIDE. [Interacting]
     Active Substance: FUROSEMIDE
     Dosage: 240 MG, EVERY 8 HOURS
     Route: 042
  2. GINSENG [GINSENG NOS] [Interacting]
     Active Substance: ASIAN GINSENG
     Indication: NUTRITIONAL SUPPLEMENTATION
     Dosage: 10 TO 12 TABLETS
  3. CYCLOSPORINE. [Suspect]
     Active Substance: CYCLOSPORINE
     Indication: GLOMERULONEPHRITIS MEMBRANOUS
  4. FUROSEMIDE. [Suspect]
     Active Substance: FUROSEMIDE
     Indication: DIURETIC THERAPY
     Dosage: 240 MG, EVERY 8 HOURS
     Route: 042
  5. FUROSEMIDE. [Interacting]
     Active Substance: FUROSEMIDE
     Indication: GLOMERULONEPHRITIS MEMBRANOUS
     Dosage: 80 MG, TWICE DAILY
  6. FUROSEMIDE. [Interacting]
     Active Substance: FUROSEMIDE
     Dosage: 240 MG, 2X/DAY
  7. CYCLOSPORINE. [Suspect]
     Active Substance: CYCLOSPORINE
     Indication: DIURETIC THERAPY
     Dosage: UNK

REACTIONS (3)
  - Drug interaction [Unknown]
  - Drug ineffective [Recovering/Resolving]
  - Drug resistance [Recovering/Resolving]
